FAERS Safety Report 18333950 (Version 1)
Quarter: 2020Q3

REPORT INFORMATION
  Report Type: Spontaneous
  Country: US (occurrence: US)
  Receive Date: 20200930
  Receipt Date: 20200930
  Transmission Date: 20201103
  Serious: No
  Sender: FDA-Public Use
  Company Number: None

PATIENT

DRUGS (1)
  1. CLINDAMYCIN HCL 300 MG CAPSULE [Suspect]
     Active Substance: CLINDAMYCIN HYDROCHLORIDE
     Indication: MASTITIS
     Dosage: ?          QUANTITY:30 CAPSULE(S);?
     Route: 048
     Dates: start: 20200927, end: 20200928

REACTIONS (6)
  - Hypersensitivity [None]
  - Exposure via breast milk [None]
  - Fatigue [None]
  - Rash [None]
  - Diarrhoea [None]
  - Dizziness [None]

NARRATIVE: CASE EVENT DATE: 20200927
